FAERS Safety Report 6213256-X (Version None)
Quarter: 2009Q2

REPORT INFORMATION
  Report Type: 
  Country: None (occurrence: None)
  Receive Date: 20090602
  Receipt Date: 20090602
  Transmission Date: 20091009
  Serious: Yes (Other)
  Sender: FDA-Public Use
  Company Number: None

PATIENT
  Age: 31 Year
  Sex: Female
  Weight: 163.2949 kg

DRUGS (1)
  1. BUDEPRION XL 300MG TEVA USA [Suspect]
     Indication: DEPRESSION
     Dosage: 300 MG TABLET ONCE DAILY PO
     Route: 048
     Dates: start: 20080501, end: 20090501

REACTIONS (4)
  - DEPRESSION [None]
  - SLEEP DISORDER [None]
  - SOCIAL AVOIDANT BEHAVIOUR [None]
  - WEIGHT INCREASED [None]
